FAERS Safety Report 13401207 (Version 1)
Quarter: 2017Q2

REPORT INFORMATION
  Report Type: Spontaneous
  Country: US (occurrence: US)
  Receive Date: 20170404
  Receipt Date: 20170404
  Transmission Date: 20170830
  Serious: Yes (Hospitalization, Other)
  Sender: FDA-Public Use
  Company Number: US-TEVA-755545USA

PATIENT
  Age: 58 Year
  Sex: Male

DRUGS (5)
  1. CITALOPRAM [Concomitant]
     Active Substance: CITALOPRAM HYDROBROMIDE
     Dosage: 40MG/DAY
     Route: 065
  2. CLOZAPINE. [Suspect]
     Active Substance: CLOZAPINE
     Dosage: 500MG/DAY
     Route: 065
     Dates: start: 2001
  3. ZIPRASIDONE. [Suspect]
     Active Substance: ZIPRASIDONE
     Dosage: INITIAL DOSE UNKNOWN, LATER TITRATED TO 120MG/DAY
     Route: 065
     Dates: start: 200811
  4. ZIPRASIDONE. [Suspect]
     Active Substance: ZIPRASIDONE
     Dosage: 120MG/DAY; DOSE FURTHER INCREASED TO 160MG/DAY
     Route: 065
     Dates: start: 200811
  5. ZIPRASIDONE. [Suspect]
     Active Substance: ZIPRASIDONE
     Dosage: 160MG/DAY; STARTED ON OCTOBER 2014
     Route: 065
     Dates: start: 200811

REACTIONS (2)
  - Granulocytopenia [Recovering/Resolving]
  - Leukopenia [Recovering/Resolving]
